FAERS Safety Report 8880257 (Version 2)
Quarter: 2012Q4

REPORT INFORMATION
  Report Type: 
  Country: GR (occurrence: GR)
  Receive Date: 20121101
  Receipt Date: 20121114
  Transmission Date: 20130627
  Serious: No
  Sender: FDA-Public Use
  Company Number: PHHY2012GR098195

PATIENT
  Age: 17 Year
  Sex: Male

DRUGS (2)
  1. GLIVEC [Suspect]
     Indication: CHRONIC MYELOID LEUKAEMIA
  2. ANTIPSYCHOTICS [Suspect]

REACTIONS (1)
  - Mania [Recovering/Resolving]
